FAERS Safety Report 7627738-7 (Version None)
Quarter: 2011Q3

REPORT INFORMATION
  Report Type: 
  Country: None (occurrence: None)
  Receive Date: 20110721
  Receipt Date: 20110714
  Transmission Date: 20111222
  Serious: Yes (Hospitalization, Other)
  Sender: FDA-Public Use
  Company Number: US-PFIZER INC-2011069798

PATIENT
  Sex: Male

DRUGS (13)
  1. AMBIEN [Concomitant]
     Indication: INSOMNIA
     Dosage: UNK
     Dates: start: 20030101, end: 20100101
  2. FLEXERIL [Concomitant]
     Indication: MUSCLE RELAXANT THERAPY
  3. OXYCONTIN [Concomitant]
     Indication: BACK PAIN
     Dosage: UNK
     Dates: start: 20030101
  4. ADVAIR DISKUS 100/50 [Concomitant]
     Indication: ASTHMA
     Dosage: UNK
     Dates: start: 20050101
  5. LORAZEPAM [Concomitant]
     Indication: ANXIETY
  6. AZITHROMYCIN [Concomitant]
     Indication: ANTIBIOTIC THERAPY
     Dosage: UNK
     Dates: start: 20060101, end: 20090101
  7. DESMOPRESSIN [Concomitant]
     Indication: VON WILLEBRAND'S DISEASE
     Dosage: UNK
     Dates: start: 20030101
  8. FLEXERIL [Concomitant]
     Indication: BACK PAIN
     Dosage: UNK
     Dates: start: 20050101
  9. ERY-TAB [Concomitant]
     Indication: BRONCHITIS
     Dosage: UNK
     Dates: start: 20060101, end: 20090101
  10. CHANTIX [Suspect]
     Indication: SMOKING CESSATION THERAPY
     Dosage: STARTER PACK AND 1MG
     Dates: start: 20070430, end: 20090801
  11. ALBUTEROL SULFATE AUTOHALER [Concomitant]
     Indication: ASTHMA
     Dosage: UNK
     Dates: start: 20050101, end: 20080101
  12. LORAZEPAM [Concomitant]
     Indication: MUSCLE SPASMS
     Dosage: UNK
     Dates: start: 20050101
  13. RANITIDINE [Concomitant]
     Indication: GASTROOESOPHAGEAL REFLUX DISEASE
     Dosage: UNK
     Dates: start: 20040101, end: 20100101

REACTIONS (8)
  - COGNITIVE DISORDER [None]
  - ANXIETY [None]
  - DEPRESSION [None]
  - NIGHTMARE [None]
  - INSOMNIA [None]
  - SUICIDAL IDEATION [None]
  - CONVULSION [None]
  - LOSS OF CONSCIOUSNESS [None]
